FAERS Safety Report 16519758 (Version 1)
Quarter: 2019Q3

REPORT INFORMATION
  Report Type: Spontaneous
  Country: US (occurrence: US)
  Receive Date: 20190702
  Receipt Date: 20190702
  Transmission Date: 20191004
  Serious: Yes (Hospitalization)
  Sender: FDA-Public Use
  Company Number: US-CHURCH + DWIGHT CO., INC.-2070227

PATIENT
  Age: 79 Year
  Sex: Female

DRUGS (1)
  1. VIVISCAL DIETARY SUPPLEMENT 180 CT [Suspect]
     Active Substance: DIETARY SUPPLEMENT
     Route: 048
     Dates: start: 20190531, end: 20190609

REACTIONS (1)
  - Diarrhoea [Recovered/Resolved]

NARRATIVE: CASE EVENT DATE: 20190531
